FAERS Safety Report 7892754-7 (Version None)
Quarter: 2011Q4

REPORT INFORMATION
  Report Type: 
  Country: None (occurrence: None)
  Receive Date: 20111104
  Receipt Date: 20111102
  Transmission Date: 20120403
  Serious: Yes (Life-Threatening, Hospitalization, Other)
  Sender: FDA-Public Use
  Company Number: DE-BRISTOL-MYERS SQUIBB COMPANY-16118515

PATIENT
  Age: 76 Year
  Sex: Female
  Weight: 88 kg

DRUGS (4)
  1. RANITIDINE [Suspect]
     Dosage: FORMU: 50MG,1 DF: 1AMPOULE NEARLY 3PER MONTH
     Route: 042
     Dates: start: 20110314, end: 20110704
  2. FENISTIL [Suspect]
     Dosage: FORMU: 4MG, 1DF= 1AMPOULE NEARLY 3PER MONTH
     Route: 042
     Dates: start: 20110314, end: 20110704
  3. ONDANSETRON [Suspect]
     Dosage: 1 DF= 8MG AMPOULE NEARLY 3PER MONTH
     Route: 042
     Dates: start: 20110314, end: 20110704
  4. TAXOL [Suspect]
     Indication: OVARIAN CANCER
     Dosage: 1DF = 100-160MG NERALY 2 PER MONTH (CUMULATIVE DOSE 2120MG)
     Route: 042
     Dates: start: 20110314, end: 20110704

REACTIONS (1)
  - RENAL FAILURE ACUTE [None]
